FAERS Safety Report 10953154 (Version 1)
Quarter: 2015Q1

REPORT INFORMATION
  Report Type: Spontaneous
  Country: US (occurrence: US)
  Receive Date: 20150325
  Receipt Date: 20150325
  Transmission Date: 20150721
  Serious: Yes (Other)
  Sender: FDA-Public Use
  Company Number: US-AMGEN-USASP2015027603

PATIENT

DRUGS (7)
  1. RITUXIMAB [Suspect]
     Active Substance: RITUXIMAB
     Indication: DIFFUSE LARGE B-CELL LYMPHOMA
     Dosage: 375 MG/M2, UNK
     Route: 042
  2. CYCLOPHOSPHAMIDE. [Suspect]
     Active Substance: CYCLOPHOSPHAMIDE
     Indication: DIFFUSE LARGE B-CELL LYMPHOMA
     Dosage: 750 MG/M2, ON DAY 1 OF CYCLE
     Route: 042
  3. PREDNISONE. [Suspect]
     Active Substance: PREDNISONE
     Indication: DIFFUSE LARGE B-CELL LYMPHOMA
     Dosage: 40 MG/M2, ON DAY 1 TO 5 OF EACH CYCLE
     Route: 048
  4. FILGRASTIM [Suspect]
     Active Substance: FILGRASTIM
     Indication: DIFFUSE LARGE B-CELL LYMPHOMA
     Dosage: 5 MCG/KG, DAILY (STARTING FROM DAY 2)
     Route: 058
  5. VINCRISTINE [Suspect]
     Active Substance: VINCRISTINE
     Indication: DIFFUSE LARGE B-CELL LYMPHOMA
     Dosage: 2 MG, ON DAY 1 OF CYCLE
     Route: 042
  6. PEGFILGRASTIM [Suspect]
     Active Substance: PEGFILGRASTIM
     Indication: DIFFUSE LARGE B-CELL LYMPHOMA
     Dosage: 6 MG (ON DAY 2)
     Route: 058
  7. PEGYLATED LIPOSOMAL DOXORUBICIN HCL [Suspect]
     Active Substance: DOXORUBICIN HYDROCHLORIDE
     Indication: DIFFUSE LARGE B-CELL LYMPHOMA
     Dosage: 40 MG/M2 (OVER 1 HOUR)
     Route: 042

REACTIONS (34)
  - Fatigue [Unknown]
  - Nausea [Unknown]
  - Hypoxia [Unknown]
  - Blood creatinine increased [Unknown]
  - Thrombocytopenia [Unknown]
  - Palmar-plantar erythrodysaesthesia syndrome [Unknown]
  - Pneumonitis [Unknown]
  - Neuropathy peripheral [Unknown]
  - Mental status changes [Unknown]
  - Hyperglycaemia [Unknown]
  - Aspartate aminotransferase increased [Unknown]
  - Haemorrhage [Unknown]
  - Decreased appetite [Unknown]
  - Febrile neutropenia [Unknown]
  - Neutropenia [Unknown]
  - Ejection fraction decreased [Unknown]
  - Hypomagnesaemia [Unknown]
  - Infection [Unknown]
  - Dizziness [Unknown]
  - Syncope [Unknown]
  - Chills [Unknown]
  - Pain [Unknown]
  - Insomnia [Unknown]
  - Dehydration [Unknown]
  - Musculoskeletal disorder [Unknown]
  - Constipation [Unknown]
  - Dyspnoea [Unknown]
  - Visual impairment [Unknown]
  - Hypokalaemia [Unknown]
  - Hyponatraemia [Unknown]
  - Rash [Unknown]
  - Anaemia [Unknown]
  - Embolism [Unknown]
  - Urinary retention [Unknown]
